FAERS Safety Report 8594234-2 (Version None)
Quarter: 2012Q3

REPORT INFORMATION
  Report Type: 
  Country: None (occurrence: None)
  Receive Date: 20120814
  Receipt Date: 20120810
  Transmission Date: 20120928
  Serious: Yes (Other)
  Sender: FDA-Public Use
  Company Number: JP-TEVA-353120USA

PATIENT
  Age: 66 Year
  Sex: Male

DRUGS (2)
  1. TREANDA [Suspect]
     Indication: MANTLE CELL LYMPHOMA
     Dosage: UID/QD
     Route: 042
     Dates: start: 20120309, end: 20120310
  2. RITUXIMAB [Concomitant]
     Dates: start: 20120530, end: 20120530

REACTIONS (1)
  - INTERSTITIAL LUNG DISEASE [None]
